FAERS Safety Report 5156792-X (Version None)
Quarter: 2006Q4

REPORT INFORMATION
  Report Type: 
  Country: None (occurrence: None)
  Receive Date: 20061115
  Receipt Date: 20061102
  Transmission Date: 20070319
  Serious: Yes (Other)
  Sender: FDA-Public Use
  Company Number: 2006136857

PATIENT
  Sex: Male
  Weight: 63.5036 kg

DRUGS (3)
  1. PIROXICAM [Suspect]
     Indication: BONE PAIN
     Dosage: 40 MG (20 MG, 2 IN 1 D), ORAL
     Route: 048
     Dates: start: 20060501, end: 20061001
  2. PANTOPRAZOLE SODIUM [Concomitant]
  3. ASASANTIN RETARD (ACETYLSALICYLIC ACID, DIPYRIDAMOLE) [Concomitant]

REACTIONS (2)
  - GASTROINTESTINAL INFLAMMATION [None]
  - HELICOBACTER INFECTION [None]
